FAERS Safety Report 20051792 (Version 1)
Quarter: 2021Q4

REPORT INFORMATION
  Report Type: Spontaneous
  Country: GR (occurrence: GR)
  Receive Date: 20211110
  Receipt Date: 20211110
  Transmission Date: 20220303
  Serious: Yes (Other)
  Sender: FDA-Public Use
  Company Number: GR-ALVOGEN-2021-ALVOGEN-117741

PATIENT
  Age: 17 Year
  Sex: Male

DRUGS (1)
  1. CLINDAMYCIN [Suspect]
     Active Substance: CLINDAMYCIN
     Indication: Tonsillitis
     Dosage: UNKNOWN DOSE AND FREQUENCY

REACTIONS (1)
  - Kounis syndrome [Unknown]
